FAERS Safety Report 11396638 (Version 1)
Quarter: 2015Q3

REPORT INFORMATION
  Report Type: Other
  Country: US (occurrence: US)
  Receive Date: 20150819
  Receipt Date: 20150819
  Transmission Date: 20151125
  Serious: Yes (Hospitalization)
  Sender: FDA-Public Use
  Company Number: US-ENDO PHARMACEUTICALS INC-2015-002311

PATIENT
  Age: 19 Year
  Sex: Male

DRUGS (3)
  1. PERPHENAZINE TABLETS [Suspect]
     Active Substance: PERPHENAZINE
     Indication: SCHIZOAFFECTIVE DISORDER
     Route: 065
  2. SITAGLIPTIN METFORMIN [Concomitant]
     Active Substance: METFORMIN HYDROCHLORIDE\SITAGLIPTIN PHOSPHATE
     Indication: PRODUCT USED FOR UNKNOWN INDICATION
  3. PERPHENAZINE TABLETS [Suspect]
     Active Substance: PERPHENAZINE
     Route: 065

REACTIONS (1)
  - Hyperosmolar hyperglycaemic state [Recovered/Resolved]
